FAERS Safety Report 6172679-8 (Version None)
Quarter: 2009Q2

REPORT INFORMATION
  Report Type: 
  Country: None (occurrence: None)
  Receive Date: 20090430
  Receipt Date: 20090417
  Transmission Date: 20091009
  Serious: Yes (Other)
  Sender: FDA-Public Use
  Company Number: IT-CELGENEUS-083-CCAZA-09041262

PATIENT

DRUGS (10)
  1. VIDAZA [Suspect]
     Route: 058
  2. VIDAZA [Suspect]
     Indication: ACUTE MYELOID LEUKAEMIA
  3. VALPROIC ACID [Concomitant]
     Route: 065
  4. VALPROIC ACID [Concomitant]
     Indication: ACUTE MYELOID LEUKAEMIA
  5. ATRA [Concomitant]
     Route: 065
  6. ATRA [Concomitant]
     Indication: ACUTE MYELOID LEUKAEMIA
  7. GROWTH FACTORS [Concomitant]
     Route: 065
  8. GROWTH FACTORS [Concomitant]
     Indication: ACUTE MYELOID LEUKAEMIA
  9. GEMTUZUMAB OZOGAMYCIN [Concomitant]
     Route: 065
  10. GEMTUZUMAB OZOGAMYCIN [Concomitant]
     Indication: ACUTE MYELOID LEUKAEMIA

REACTIONS (5)
  - BONE MARROW FAILURE [None]
  - FUNGAL INFECTION [None]
  - GASTROINTESTINAL DISORDER [None]
  - PNEUMONIA [None]
  - SEPTIC SHOCK [None]
